FAERS Safety Report 13458272 (Version 2)
Quarter: 2017Q2

REPORT INFORMATION
  Report Type: Spontaneous
  Country: US (occurrence: US)
  Receive Date: 20170419
  Receipt Date: 20170509
  Transmission Date: 20170830
  Serious: Yes (Death)
  Sender: FDA-Public Use
  Company Number: US-ELI_LILLY_AND_COMPANY-US201704005342

PATIENT
  Age: 62 Year
  Sex: Male
  Weight: 50.34 kg

DRUGS (3)
  1. LARTRUVO [Suspect]
     Active Substance: OLARATUMAB
     Indication: SPINDLE CELL SARCOMA
     Dosage: 792 MG, CYCLICAL
     Route: 042
     Dates: start: 20170101
  2. LARTRUVO [Suspect]
     Active Substance: OLARATUMAB
     Dosage: 792 MG, CYCLICAL
     Route: 042
     Dates: start: 20170303
  3. DOXORUBICIN [Suspect]
     Active Substance: DOXORUBICIN
     Indication: SPINDLE CELL SARCOMA
     Dosage: UNK UNK, UNKNOWN
     Route: 065

REACTIONS (2)
  - Off label use [Unknown]
  - Death [Fatal]

NARRATIVE: CASE EVENT DATE: 20170404
